FAERS Safety Report 4381200-6 (Version None)
Quarter: 2004Q2

REPORT INFORMATION
  Report Type: 
  Country: None (occurrence: None)
  Receive Date: 20040616
  Receipt Date: 20040601
  Transmission Date: 20050107
  Serious: Yes (Life-Threatening, Hospitalization)
  Sender: FDA-Public Use
  Company Number: 2004-02423

PATIENT
  Age: 56 Year
  Sex: Male
  Weight: 90.7 kg

DRUGS (6)
  1. PREDNISONE [Suspect]
     Indication: GLOMERULONEPHRITIS MEMBRANOUS
     Dosage: 4 TABLET, DAILY, ORAL
     Route: 048
     Dates: start: 20031001, end: 20040115
  2. PREDNISONE [Suspect]
     Indication: GLOMERULONEPHRITIS MEMBRANOUS
     Dosage: 4 TABLET, DAILY, ORAL
     Route: 048
     Dates: start: 20040116, end: 20040123
  3. FOSAMAX [Concomitant]
  4. DIOVAN ^NOVARTIS (VALSARTAN) [Concomitant]
  5. ALTACE [Concomitant]
  6. LEVOTHYROXINE SODIUM [Concomitant]

REACTIONS (10)
  - ABDOMINAL PAIN UPPER [None]
  - ASTHENIA [None]
  - BLOOD GLUCOSE INCREASED [None]
  - DIVERTICULAR PERFORATION [None]
  - INSOMNIA [None]
  - PERITONITIS [None]
  - PNEUMONIA LEGIONELLA [None]
  - POST PROCEDURAL COMPLICATION [None]
  - VOLUME BLOOD DECREASED [None]
  - WEIGHT DECREASED [None]
